FAERS Safety Report 14770405 (Version 2)
Quarter: 2018Q2

REPORT INFORMATION
  Report Type: Spontaneous
  Country: US (occurrence: US)
  Receive Date: 20180417
  Receipt Date: 20180419
  Transmission Date: 20180711
  Serious: Yes (Other)
  Sender: FDA-Public Use
  Company Number: US-PFIZER INC-2018153593

PATIENT
  Age: 75 Year
  Sex: Female

DRUGS (4)
  1. LYRICA [Concomitant]
     Active Substance: PREGABALIN
     Dosage: UNK
  2. CYMBALTA [Concomitant]
     Active Substance: DULOXETINE HYDROCHLORIDE
     Dosage: UNK
  3. GABAPENTIN. [Suspect]
     Active Substance: GABAPENTIN
     Dosage: UNK
  4. HYDROCODONE [Concomitant]
     Active Substance: HYDROCODONE
     Dosage: UNK

REACTIONS (8)
  - Rhabdomyolysis [Unknown]
  - Ligament sprain [Unknown]
  - Loss of personal independence in daily activities [Unknown]
  - Chromaturia [Unknown]
  - Fall [Unknown]
  - Hand fracture [Unknown]
  - Balance disorder [Recovering/Resolving]
  - Memory impairment [Recovering/Resolving]
